FAERS Safety Report 18810958 (Version 1)
Quarter: 2021Q1

REPORT INFORMATION
  Report Type: Spontaneous
  Country: GB (occurrence: GB)
  Receive Date: 20210129
  Receipt Date: 20210129
  Transmission Date: 20210419
  Serious: Yes (Hospitalization)
  Sender: FDA-Public Use
  Company Number: GB-MYLANLABS-2021M1005933

PATIENT
  Age: 38 Year
  Sex: Male

DRUGS (1)
  1. CLOZAPINE. [Suspect]
     Active Substance: CLOZAPINE
     Indication: PSYCHOTIC DISORDER DUE TO A GENERAL MEDICAL CONDITION
     Dosage: 325 MILLIGRAM, QD
     Route: 065

REACTIONS (5)
  - Myoclonus [Unknown]
  - Somnolence [Unknown]
  - Salivary hypersecretion [Unknown]
  - Toxicity to various agents [Unknown]
  - Off label use [Unknown]
